FAERS Safety Report 15220280 (Version 1)
Quarter: 2018Q3

REPORT INFORMATION
  Report Type: Report from Study
  Country: FR (occurrence: FR)
  Receive Date: 20180731
  Receipt Date: 20180731
  Transmission Date: 20181010
  Serious: Yes (Other)
  Sender: FDA-Public Use
  Company Number: FR-TEVA-2018-FR-932030

PATIENT
  Age: 75 Year
  Sex: Female
  Weight: 77 kg

DRUGS (5)
  1. FLUOROURACIL. [Suspect]
     Active Substance: FLUOROURACIL
     Dosage: 400 MG/M2, CYCLIC (ON DAY1 AND DAY 14)
     Route: 040
     Dates: start: 20170308, end: 20170720
  2. OXALIPLATIN. [Suspect]
     Active Substance: OXALIPLATIN
     Indication: PANCREATIC NEUROENDOCRINE TUMOUR
     Dosage: 64 MG/M2 (156 MG), CYCLIC (ON DAY1 AND DAY 14)
     Route: 065
     Dates: start: 20170308, end: 20170720
  3. FLUOROURACIL. [Suspect]
     Active Substance: FLUOROURACIL
     Indication: PANCREATIC NEUROENDOCRINE TUMOUR
     Dosage: 2400 MG/M2 (5124 MG), CYCLIC (ON DAY1 AND DAY 14)
     Route: 041
     Dates: start: 20170308, end: 20170720
  4. CALCIUM FOLINATE [Suspect]
     Active Substance: LEUCOVORIN CALCIUM
     Dosage: 400 MG/M2, CYCLIC (ON DAY1 AND DAY 14)
     Route: 040
     Dates: start: 20170308, end: 20170720
  5. CALCIUM FOLINATE [Suspect]
     Active Substance: LEUCOVORIN CALCIUM
     Indication: PANCREATIC NEUROENDOCRINE TUMOUR
     Dosage: 2400 MG/M2 (5124 MG), CYCLIC (ON DAY1 AND DAY 14)
     Route: 041
     Dates: start: 20170308, end: 20170720

REACTIONS (3)
  - Asthenia [Not Recovered/Not Resolved]
  - Mucosal inflammation [Recovering/Resolving]
  - Neurotoxicity [Not Recovered/Not Resolved]

NARRATIVE: CASE EVENT DATE: 201703
